FAERS Safety Report 8796147 (Version 1)
Quarter: 2012Q4

REPORT INFORMATION
  Report Type: 
  Country: MX (occurrence: MX)
  Receive Date: 20120919
  Receipt Date: 20120919
  Transmission Date: 20130627
  Serious: Yes (Other)
  Sender: FDA-Public Use
  Company Number: MX-BRISTOL-MYERS SQUIBB COMPANY-16976557

PATIENT

DRUGS (1)
  1. STREPTOMYCIN [Suspect]

REACTIONS (1)
  - Vertigo [Unknown]
